FAERS Safety Report 13421935 (Version 7)
Quarter: 2017Q2

REPORT INFORMATION
  Report Type: Spontaneous
  Country: US (occurrence: US)
  Receive Date: 20170410
  Receipt Date: 20170607
  Transmission Date: 20170830
  Serious: Yes (Hospitalization, Other)
  Sender: FDA-Public Use
  Company Number: US-PFIZER INC-2017130645

PATIENT
  Age: 69 Year
  Sex: Male
  Weight: 71.2 kg

DRUGS (8)
  1. SUTENT [Suspect]
     Active Substance: SUNITINIB MALATE
     Indication: METASTATIC RENAL CELL CARCINOMA
     Dosage: 50 MG, CYCLIC (2 WEEKS ON/1 WEEK OFF)
     Route: 048
     Dates: start: 20170328
  2. SUTENT [Suspect]
     Active Substance: SUNITINIB MALATE
     Dosage: 50 MG, CYCLIC (1 WEEK ON AND 1 WEEK OFF)
     Dates: start: 20170328, end: 20170522
  3. PERCOCET [Concomitant]
     Active Substance: ACETAMINOPHEN\OXYCODONE HYDROCHLORIDE
     Indication: BREAKTHROUGH PAIN
     Dosage: UNK
  4. ZOFRAN [Concomitant]
     Active Substance: ONDANSETRON HYDROCHLORIDE
     Dosage: UNK
  5. OXYCODONE [Concomitant]
     Active Substance: OXYCODONE
     Dosage: UNK
  6. ZANTAC [Concomitant]
     Active Substance: RANITIDINE HYDROCHLORIDE
     Dosage: UNK
  7. FENTANYL. [Concomitant]
     Active Substance: FENTANYL
     Indication: BREAKTHROUGH PAIN
     Dosage: UNK
  8. PRILOSEC [Concomitant]
     Active Substance: OMEPRAZOLE MAGNESIUM
     Dosage: UNK

REACTIONS (24)
  - Dehydration [Unknown]
  - Blood potassium decreased [Unknown]
  - Dysgeusia [Unknown]
  - Decreased appetite [Unknown]
  - Feeling abnormal [Unknown]
  - Diet refusal [Unknown]
  - Refusal of treatment by patient [Unknown]
  - Proctalgia [Unknown]
  - Gastrooesophageal reflux disease [Unknown]
  - Asthenia [Unknown]
  - Constipation [Unknown]
  - Diarrhoea [Unknown]
  - Infection [Unknown]
  - Pain [Unknown]
  - Fatigue [Unknown]
  - Loss of personal independence in daily activities [Unknown]
  - Sepsis [Unknown]
  - Pyrexia [Unknown]
  - Anal inflammation [Unknown]
  - Nausea [Unknown]
  - Dysphagia [Unknown]
  - Vomiting [Unknown]
  - Anorectal discomfort [Unknown]
  - Weight decreased [Unknown]
